FAERS Safety Report 23032562 (Version 1)
Quarter: 2023Q4

REPORT INFORMATION
  Report Type: Spontaneous
  Country: HR (occurrence: HR)
  Receive Date: 20231005
  Receipt Date: 20231005
  Transmission Date: 20240109
  Serious: Yes (Other)
  Sender: FDA-Public Use
  Company Number: None

PATIENT
  Sex: Female

DRUGS (4)
  1. CONTROLOC [Suspect]
     Active Substance: PANTOPRAZOLE SODIUM
     Dosage: 8 DF, 1X/DAY
     Route: 048
     Dates: start: 20230802, end: 20230802
  2. ASPIRIN [Suspect]
     Active Substance: ASPIRIN
     Dosage: 8 DF, 1X/DAY
     Route: 048
     Dates: start: 20230802, end: 20230802
  3. IBUPROFEN [Suspect]
     Active Substance: IBUPROFEN
     Dosage: UNK, 1X/DAY
     Route: 048
     Dates: start: 20230802, end: 20230802
  4. OXAZEPAM [Suspect]
     Active Substance: OXAZEPAM
     Dosage: 270 MG, 1X/DAY
     Route: 048
     Dates: start: 20230802, end: 20230802

REACTIONS (3)
  - Intentional overdose [Unknown]
  - Suicide attempt [Unknown]
  - Somnolence [Unknown]

NARRATIVE: CASE EVENT DATE: 20230802
